FAERS Safety Report 16379586 (Version 1)
Quarter: 2019Q2

REPORT INFORMATION
  Report Type: Report from Study
  Country: None (occurrence: US)
  Receive Date: 20190531
  Receipt Date: 20190531
  Transmission Date: 20190711
  Serious: Yes (Death)
  Sender: FDA-Public Use
  Company Number: US-ABBVIE-19K-163-2804168-00

PATIENT
  Age: 56 Year
  Sex: Male

DRUGS (4)
  1. VENCLEXTA [Suspect]
     Active Substance: VENETOCLAX
     Indication: B-CELL SMALL LYMPHOCYTIC LYMPHOMA
     Dosage: DAY ONE
     Route: 048
     Dates: start: 20190509, end: 20190509
  2. VENCLEXTA [Suspect]
     Active Substance: VENETOCLAX
     Dosage: DAY TWO
     Route: 048
     Dates: start: 20190510, end: 20190510
  3. VENCLEXTA [Suspect]
     Active Substance: VENETOCLAX
     Dosage: DAY FOUR AND ONWARDS
     Route: 048
     Dates: start: 20190512, end: 201905
  4. VENCLEXTA [Suspect]
     Active Substance: VENETOCLAX
     Dosage: DAY THREE
     Route: 048
     Dates: start: 20190511, end: 20190511

REACTIONS (1)
  - Death [Fatal]

NARRATIVE: CASE EVENT DATE: 20190522
